FAERS Safety Report 5253371-0 (Version None)
Quarter: 2007Q1

REPORT INFORMATION
  Report Type: 
  Country: None (occurrence: None)
  Receive Date: 20070301
  Receipt Date: 20070228
  Transmission Date: 20070707
  Serious: Yes (Death, Other)
  Sender: FDA-Public Use
  Company Number: FR-BRISTOL-MYERS SQUIBB COMPANY-13694963

PATIENT
  Age: 55 Year
  Sex: Female

DRUGS (5)
  1. COUMADIN [Suspect]
     Route: 048
     Dates: start: 20070108
  2. AVASTIN [Suspect]
     Route: 042
     Dates: start: 20070122
  3. CAMPTOSAR [Suspect]
     Route: 042
  4. FLUOROURACIL [Suspect]
     Route: 042
  5. ZOFRAN [Suspect]
     Route: 042
     Dates: start: 20070122

REACTIONS (2)
  - DEATH [None]
  - HAEMORRHAGE [None]
